FAERS Safety Report 8607944-5 (Version None)
Quarter: 2012Q3

REPORT INFORMATION
  Report Type: 
  Country: None (occurrence: None)
  Receive Date: 20120821
  Receipt Date: 20120814
  Transmission Date: 20120928
  Serious: Yes (Hospitalization)
  Sender: FDA-Public Use
  Company Number: DE-BRISTOL-MYERS SQUIBB COMPANY-16659450

PATIENT
  Age: 61 Year
  Sex: Male
  Weight: 96 kg

DRUGS (6)
  1. ERBITUX [Suspect]
     Indication: COLORECTAL CANCER METASTATIC
     Dosage: 03-3MAY12 400MG/M2,10MAY12-18MAY12(8DAYS)250MG/M2ALSO TKN RECENT INF ON 18MAY12 REST 8JUN12-ONG
     Route: 042
     Dates: start: 20120503
  2. RAMIPRIL [Concomitant]
     Indication: HYPERTENSION
     Route: 048
  3. FLUOROURACIL [Concomitant]
     Indication: CHEMOTHERAPY
     Route: 042
     Dates: start: 20120419
  4. LEUCOVORIN CALCIUM [Concomitant]
     Indication: CHEMOTHERAPY
     Dosage: 28.5714MG/M2
     Route: 042
     Dates: start: 20120419
  5. CORTICOSTEROID [Concomitant]
     Indication: PREMEDICATION
     Dosage: 3MAY12-3MAY12 10MAY12-10MAY12
     Route: 048
     Dates: start: 20120503, end: 20120510
  6. IRINOTECAN HYDROCHLORIDE [Concomitant]
     Indication: CHEMOTHERAPY
     Dosage: 12.8971MG/M2
     Route: 042
     Dates: start: 20120419

REACTIONS (1)
  - ARTERIAL THROMBOSIS LIMB [None]
